FAERS Safety Report 17346451 (Version 1)
Quarter: 2020Q1

REPORT INFORMATION
  Report Type: Spontaneous
  Country: US (occurrence: US)
  Receive Date: 20200130
  Receipt Date: 20200130
  Transmission Date: 20200409
  Serious: Yes (Hospitalization)
  Sender: FDA-Public Use
  Company Number: US-ZYDUS-046892

PATIENT
  Age: 71 Year
  Sex: Male

DRUGS (2)
  1. DEXMEDETOMIDINE/DEXMEDETOMIDINE HYDROCHLORIDE [Suspect]
     Active Substance: DEXMEDETOMIDINE HYDROCHLORIDE
     Indication: SEDATION
     Route: 065
  2. FENTANYL/FENTANYL CITRATE [Concomitant]
     Active Substance: FENTANYL
     Indication: SEDATION
     Route: 041

REACTIONS (1)
  - Cardiac failure congestive [Recovered/Resolved]
